FAERS Safety Report 8840090 (Version 2)
Quarter: 2013Q1

REPORT INFORMATION
  Report Type: Spontaneous
  Country: US (occurrence: None)
  Receive Date: 20121011
  Receipt Date: 20121206
  Transmission Date: 20140127
  Serious: Yes (Hospitalization)
  Sender: FDA-Public Use
  Company Number: JPI-P-025538

PATIENT
  Age: 52 Year
  Sex: Female
  Weight: 63.5 kg

DRUGS (1)
  1. XYREM [Suspect]
     Indication: CATAPLEXY
     Route: 048
     Dates: start: 20120201, end: 2012

REACTIONS (3)
  - Cellulitis [None]
  - Streptococcal bacteraemia [None]
  - Blood pressure increased [None]
